FAERS Safety Report 5173166-6 (Version None)
Quarter: 2006Q4

REPORT INFORMATION
  Report Type: 
  Country: None (occurrence: None)
  Receive Date: 20061208
  Receipt Date: 20061208
  Transmission Date: 20070319
  Serious: Yes (Hospitalization)
  Sender: FDA-Public Use
  Company Number: None

PATIENT
  Age: 72 Year
  Sex: Male
  Weight: 67.2 kg

DRUGS (1)
  1. NELFINAVIR [Suspect]
     Indication: LIPOSARCOMA
     Dosage: 1250 MG PO BID
     Route: 048
     Dates: start: 20061106

REACTIONS (7)
  - BLOOD ALKALINE PHOSPHATASE INCREASED [None]
  - BLOOD CREATININE INCREASED [None]
  - BLOOD POTASSIUM INCREASED [None]
  - BLOOD UREA INCREASED [None]
  - DISEASE PROGRESSION [None]
  - DISEASE RECURRENCE [None]
  - PANCREATITIS [None]
